FAERS Safety Report 7557700-4 (Version None)
Quarter: 2011Q2

REPORT INFORMATION
  Report Type: 
  Country: None (occurrence: None)
  Receive Date: 20110620
  Receipt Date: 20110610
  Transmission Date: 20111010
  Serious: Yes (Other)
  Sender: FDA-Public Use
  Company Number: JP-JNJFOC-20110607951

PATIENT
  Age: 47 Year
  Sex: Female

DRUGS (1)
  1. ITRACONAZOLE [Suspect]
     Indication: ONYCHOMYCOSIS
     Route: 048
     Dates: start: 20110528, end: 20110603

REACTIONS (4)
  - ANAEMIA [None]
  - OEDEMA [None]
  - DIZZINESS [None]
  - RASH [None]
